FAERS Safety Report 7016508-9 (Version None)
Quarter: 2010Q3

REPORT INFORMATION
  Report Type: 
  Country: None (occurrence: None)
  Receive Date: 20100923
  Receipt Date: 20100914
  Transmission Date: 20110219
  Serious: Yes (Other)
  Sender: FDA-Public Use
  Company Number: 2010SP049264

PATIENT
  Age: 64 Year
  Sex: Male

DRUGS (6)
  1. TEMODAL [Suspect]
     Indication: GLIOBLASTOMA MULTIFORME
     Dosage: 145 MG;
     Dates: start: 20100823
  2. DEXAMETHASONE [Concomitant]
  3. RESPRIM [Concomitant]
  4. ONDANSETRON [Concomitant]
  5. DOCUSATE SODIUM [Concomitant]
  6. VALPRO [Concomitant]

REACTIONS (1)
  - DEEP VEIN THROMBOSIS [None]
